FAERS Safety Report 19404832 (Version 1)
Quarter: 2021Q2

REPORT INFORMATION
  Report Type: Spontaneous
  Country: US (occurrence: US)
  Receive Date: 20210611
  Receipt Date: 20210611
  Transmission Date: 20210717
  Serious: Yes (Hospitalization)
  Sender: FDA-Public Use
  Company Number: US-MYLANLABS-2021M1033968

PATIENT
  Age: 8 Decade
  Sex: Male

DRUGS (8)
  1. RIVAROXABAN [Concomitant]
     Active Substance: RIVAROXABAN
     Indication: ANTICOAGULANT THERAPY
     Route: 065
  2. PACLITAXEL. [Suspect]
     Active Substance: PACLITAXEL
     Indication: VASCULAR GRAFT STENOSIS
     Dosage: DOSE 3.5 MCG/MM2
     Route: 065
  3. ATORVASTATIN [Concomitant]
     Active Substance: ATORVASTATIN
     Indication: PROPHYLAXIS
  4. CLOPIDOGREL [Concomitant]
     Active Substance: CLOPIDOGREL BISULFATE
     Indication: ANTIPLATELET THERAPY
     Route: 065
  5. GEMFIBROZIL. [Concomitant]
     Active Substance: GEMFIBROZIL
     Indication: DYSLIPIDAEMIA
     Route: 065
  6. ASPIRIN                            /00002701/ [Concomitant]
     Active Substance: ASPIRIN
     Indication: ANTIPLATELET THERAPY
     Route: 065
  7. ATORVASTATIN [Concomitant]
     Active Substance: ATORVASTATIN
     Indication: DYSLIPIDAEMIA
     Route: 065
  8. GEMFIBROZIL. [Concomitant]
     Active Substance: GEMFIBROZIL
     Indication: PROPHYLAXIS

REACTIONS (2)
  - Off label use [Unknown]
  - Aneurysm [Recovered/Resolved]
